FAERS Safety Report 4693985-X (Version None)
Quarter: 2005Q2

REPORT INFORMATION
  Report Type: 
  Country: None (occurrence: None)
  Receive Date: 20050616
  Receipt Date: 20050531
  Transmission Date: 20051028
  Serious: Yes (Hospitalization)
  Sender: FDA-Public Use
  Company Number: DSA_70412_2004

PATIENT
  Age: 36 Year
  Sex: Female
  Weight: 79.3795 kg

DRUGS (6)
  1. AZASAN [Suspect]
     Indication: CROHN'S DISEASE
     Dosage: 150 MG QDAY
     Dates: start: 20040825
  2. AZASAN [Suspect]
     Indication: CROHN'S DISEASE
     Dosage: 75 MG QDAY
     Dates: end: 20040825
  3. ASACOL [Concomitant]
  4. ZOLOFT [Concomitant]
  5. PAMINE [Concomitant]
  6. ENDOCORT [Concomitant]

REACTIONS (2)
  - DIZZINESS [None]
  - SYNCOPE [None]
